FAERS Safety Report 11143131 (Version 7)
Quarter: 2015Q4

REPORT INFORMATION
  Report Type: Spontaneous
  Country: MX (occurrence: MX)
  Receive Date: 20150526
  Receipt Date: 20151126
  Transmission Date: 20160304
  Serious: Yes (Death, Hospitalization, Other)
  Sender: FDA-Public Use
  Company Number: MX-ROCHE-1581990

PATIENT
  Age: 70 Year
  Sex: Male
  Weight: 86 kg

DRUGS (6)
  1. XARELTO [Concomitant]
     Active Substance: RIVAROXABAN
     Indication: CARDIAC FAILURE
     Route: 048
     Dates: end: 201501
  2. ZELBORAF [Suspect]
     Active Substance: VEMURAFENIB
     Dosage: 4-0-3. ONGOING.
     Route: 048
     Dates: start: 201505
  3. DEXAMETHASONE. [Concomitant]
     Active Substance: DEXAMETHASONE
     Indication: METASTATIC MALIGNANT MELANOMA
     Route: 065
     Dates: start: 2014
  4. XARELTO [Concomitant]
     Active Substance: RIVAROXABAN
     Dosage: ONGOING
     Route: 048
     Dates: start: 201504
  5. CAPTOPRIL. [Concomitant]
     Active Substance: CAPTOPRIL
     Dosage: 1/4/ DAY
     Route: 065
     Dates: end: 2015
  6. ZELBORAF [Suspect]
     Active Substance: VEMURAFENIB
     Indication: METASTATIC MALIGNANT MELANOMA
     Dosage: 4-0-3. SUSPENDED DUE TO LACK OF AVAILABILITY
     Route: 048
     Dates: start: 201408, end: 201505

REACTIONS (22)
  - Disorientation [Not Recovered/Not Resolved]
  - Pallor [Recovered/Resolved]
  - Metastases to central nervous system [Not Recovered/Not Resolved]
  - Oral candidiasis [Recovered/Resolved]
  - Cerebrovascular accident [Recovered/Resolved]
  - Headache [Not Recovered/Not Resolved]
  - Constipation [Recovered/Resolved]
  - Constipation [Recovered/Resolved]
  - Drug dose omission [Unknown]
  - Haematochezia [Recovered/Resolved]
  - Death [Fatal]
  - Aphasia [Not Recovered/Not Resolved]
  - Dyspepsia [Recovered/Resolved]
  - Blood pressure decreased [Recovered/Resolved]
  - Haemorrhoids [Not Recovered/Not Resolved]
  - Decreased immune responsiveness [Recovered/Resolved]
  - Dizziness [Recovered/Resolved]
  - Decreased immune responsiveness [Recovered/Resolved]
  - Decreased appetite [Not Recovered/Not Resolved]
  - Diarrhoea [Recovered/Resolved]
  - Decreased appetite [Recovered/Resolved]
  - Tongue discolouration [Recovered/Resolved]

NARRATIVE: CASE EVENT DATE: 201408
